FAERS Safety Report 15319943 (Version 2)
Quarter: 2018Q3

REPORT INFORMATION
  Report Type: Spontaneous
  Country: PT (occurrence: PT)
  Receive Date: 20180827
  Receipt Date: 20180829
  Transmission Date: 20181010
  Serious: Yes (Death, Other)
  Sender: FDA-Public Use
  Company Number: PT-009507513-1807PRT006058

PATIENT
  Age: 30 Year
  Sex: Female

DRUGS (1)
  1. KEYTRUDA [Suspect]
     Active Substance: PEMBROLIZUMAB
     Indication: PRIMARY MEDIASTINAL LARGE B-CELL LYMPHOMA
     Dosage: 200 MG, Q3W

REACTIONS (3)
  - Cough [Unknown]
  - Malignant neoplasm progression [Fatal]
  - Product use in unapproved indication [Unknown]
